FAERS Safety Report 8030099-5 (Version None)
Quarter: 2012Q1

REPORT INFORMATION
  Report Type: 
  Country: None (occurrence: None)
  Receive Date: 20120109
  Receipt Date: 20111231
  Transmission Date: 20120608
  Serious: Yes (Hospitalization)
  Sender: FDA-Public Use
  Company Number: US-BAYER-201015818NA

PATIENT
  Age: 40 Year
  Sex: Female
  Weight: 92 kg

DRUGS (7)
  1. YAZ [Suspect]
     Indication: PRODUCT USED FOR UNKNOWN INDICATION
     Dosage: UNK
     Dates: start: 20071001, end: 20090101
  2. ANTIBIOTICS [Concomitant]
  3. MINOCYCLINE HCL [Concomitant]
     Indication: ACNE
     Dosage: UNK UNK, BID
  4. LEVAQUIN [Concomitant]
     Indication: INFECTION
  5. MOTRIN [Concomitant]
     Indication: SWELLING
     Dosage: 800 MG, TID
  6. WARFARIN SODIUM [Concomitant]
     Dosage: UNK
     Dates: start: 20080101, end: 20090101
  7. NSAID'S [Concomitant]

REACTIONS (3)
  - PULMONARY EMBOLISM [None]
  - THROMBOPHLEBITIS SUPERFICIAL [None]
  - THROMBOSIS [None]
